FAERS Safety Report 7763573-7 (Version None)
Quarter: 2011Q3

REPORT INFORMATION
  Report Type: 
  Country: None (occurrence: None)
  Receive Date: 20110920
  Receipt Date: 20110914
  Transmission Date: 20111222
  Serious: Yes (Death)
  Sender: FDA-Public Use
  Company Number: ES-AMGEN-UK125742

PATIENT
  Age: 87 Year
  Sex: Male

DRUGS (9)
  1. ALLOPURINOL [Concomitant]
     Dosage: 300 MG, QD
     Route: 048
     Dates: end: 20030915
  2. HYOSCINE HBR HYT [Concomitant]
     Dosage: UNK
     Route: 048
     Dates: start: 20030904, end: 20030912
  3. DARBEPOETIN ALFA [Suspect]
     Indication: ANAEMIA OF MALIGNANT DISEASE
     Dosage: 150 MUG, QWK
     Route: 058
     Dates: start: 20030618, end: 20030903
  4. OMEPRAZOLE [Concomitant]
     Dosage: UNK
     Route: 048
     Dates: start: 20030904, end: 20030915
  5. LOPERAMIDE [Concomitant]
     Dosage: UNK UNK, UNK
     Route: 048
     Dates: start: 20030904, end: 20030909
  6. GLUTAMIC ACID [Concomitant]
     Dosage: UNK
     Route: 048
     Dates: start: 20030904, end: 20030911
  7. FERROUS SULFATE TAB [Concomitant]
     Dosage: 40 MG, QD
     Route: 048
     Dates: start: 20030618, end: 20030903
  8. METFORMIN HCL [Concomitant]
     Dosage: UNK UNK, UNK
     Route: 048
     Dates: end: 20030915
  9. NIFEDIPINE [Concomitant]
     Dosage: UNK
     Route: 048
     Dates: end: 20030915

REACTIONS (1)
  - AORTIC ANEURYSM RUPTURE [None]
